FAERS Safety Report 20429960 (Version 1)
Quarter: 2022Q1

REPORT INFORMATION
  Report Type: Report from Study
  Country: US (occurrence: US)
  Receive Date: 20220204
  Receipt Date: 20220204
  Transmission Date: 20220423
  Serious: Yes (Hospitalization)
  Sender: FDA-Public Use
  Company Number: None

PATIENT

DRUGS (7)
  1. ONCASPAR [Suspect]
     Active Substance: PEGASPARGASE
     Indication: Acute lymphocytic leukaemia
     Dosage: 3750 IU, ONE DOSE
     Route: 042
     Dates: start: 20190307, end: 20190307
  2. CYTARABINE [Suspect]
     Active Substance: CYTARABINE
     Indication: Acute lymphocytic leukaemia
     Dosage: 70 MG, ONE DOSE
     Route: 065
     Dates: start: 20190304, end: 20190304
  3. DAUNORUBICIN HYDROCHLORIDE [Suspect]
     Active Substance: DAUNORUBICIN HYDROCHLORIDE
     Indication: Acute lymphocytic leukaemia
     Dosage: 210 MG, TOTAL DOSE
     Route: 065
     Dates: end: 20190325
  4. DEXAMETHASONE [Suspect]
     Active Substance: DEXAMETHASONE
     Indication: Acute lymphocytic leukaemia
     Dosage: 145.25 MG, TOTAL DOSE
     Route: 065
     Dates: end: 20190321
  5. METHOTREXATE [Suspect]
     Active Substance: METHOTREXATE
     Indication: Acute lymphocytic leukaemia
     Dosage: 15 MG, TOTAL DOSE
     Route: 065
     Dates: end: 20190311
  6. VINCRISTINE SULFATE [Suspect]
     Active Substance: VINCRISTINE SULFATE
     Indication: Acute lymphocytic leukaemia
     Dosage: 8 MG, TOTAL DOSE
     Route: 065
     Dates: end: 20190325
  7. TN UNSPECIFIED [Concomitant]
     Indication: Product used for unknown indication
     Dosage: 1 MG, ONE DOSE
     Route: 065
     Dates: start: 20190328, end: 20190328

REACTIONS (8)
  - Cerebrovascular accident [Not Recovered/Not Resolved]
  - Cerebral venous thrombosis [Unknown]
  - Inflammation [Unknown]
  - Pyrexia [Unknown]
  - Iatrogenic injury [Unknown]
  - Hypercoagulation [Unknown]
  - Restlessness [Unknown]
  - Fall [Unknown]

NARRATIVE: CASE EVENT DATE: 20190329
